FAERS Safety Report 7631333-3 (Version None)
Quarter: 2011Q3

REPORT INFORMATION
  Report Type: 
  Country: None (occurrence: None)
  Receive Date: 20110701
  Receipt Date: 20110225
  Transmission Date: 20111222
  Serious: Yes (Other)
  Sender: FDA-Public Use
  Company Number: 7044538

PATIENT
  Age: 69 Year
  Sex: Male

DRUGS (4)
  1. REBIF [Suspect]
     Indication: PRODUCT USED FOR UNKNOWN INDICATION
     Dosage: 44 MCG, 3 IN 1 WK, SUBCUTANEOUS
     Route: 058
     Dates: start: 20031028, end: 20110301
  2. ALEVE [Suspect]
     Indication: INFLUENZA
  3. ASPIRIN [Concomitant]
  4. FOLIC ACID [Concomitant]

REACTIONS (3)
  - HYPERHIDROSIS [None]
  - FEELING COLD [None]
  - LIVER FUNCTION TEST ABNORMAL [None]
